FAERS Safety Report 10161639 (Version 3)
Quarter: 2014Q2

REPORT INFORMATION
  Report Type: Report from Study
  Country: JP (occurrence: JP)
  Receive Date: 20140509
  Receipt Date: 20140519
  Transmission Date: 20141212
  Serious: Yes (Death)
  Sender: FDA-Public Use
  Company Number: JP-BRISTOL-MYERS SQUIBB COMPANY-20232070

PATIENT
  Age: 77 Year
  Sex: Male
  Weight: 78 kg

DRUGS (4)
  1. ELIQUIS [Suspect]
     Indication: THROMBOSIS PROPHYLAXIS
     Dosage: TAB.?LAST DOSE: EVENING OF 09FEB2014
     Route: 048
     Dates: start: 20140128, end: 20140209
  2. LANIRAPID [Concomitant]
     Indication: CARDIAC FAILURE
     Dosage: 1 TAB.
     Route: 048
     Dates: end: 20140209
  3. CALBLOCK [Concomitant]
     Indication: HYPERTENSION
     Dosage: 1 TABS.
     Route: 048
     Dates: end: 20140209
  4. DIOVAN [Concomitant]
     Indication: HYPERTENSION
     Dosage: 1 TAB.
     Route: 048
     Dates: end: 20140209

REACTIONS (1)
  - Embolic stroke [Fatal]
